FAERS Safety Report 8293407-6 (Version None)
Quarter: 2012Q2

REPORT INFORMATION
  Report Type: 
  Country: None (occurrence: None)
  Receive Date: 20120417
  Receipt Date: 20120222
  Transmission Date: 20120825
  Serious: Yes (Other)
  Sender: FDA-Public Use
  Company Number: US-ASTRAZENECA-2010SE36332

PATIENT
  Age: 58 Year
  Sex: Female

DRUGS (1)
  1. NEXIUM [Suspect]
     Route: 048

REACTIONS (7)
  - CREST SYNDROME [None]
  - GASTRIC HAEMORRHAGE [None]
  - GASTRIC ANTRAL VASCULAR ECTASIA [None]
  - OESOPHAGEAL DISORDER [None]
  - DRUG INEFFECTIVE [None]
  - SCLERODERMA [None]
  - FOOT FRACTURE [None]
